FAERS Safety Report 20913620 (Version 1)
Quarter: 2022Q2

REPORT INFORMATION
  Report Type: Report from Study
  Country: US (occurrence: US)
  Receive Date: 20220604
  Receipt Date: 20220604
  Transmission Date: 20220721
  Serious: No
  Sender: FDA-Public Use
  Company Number: US-NOVARTISTESTPH-NVSC2022US128453

PATIENT
  Sex: Male

DRUGS (1)
  1. ENTRESTO [Suspect]
     Active Substance: SACUBITRIL\VALSARTAN
     Indication: Cardiac failure
     Dosage: 1 DOSAGE FORM, BID
     Route: 048
     Dates: start: 20220510

REACTIONS (6)
  - Throat clearing [Recovering/Resolving]
  - Hypersensitivity [Unknown]
  - Nasopharyngitis [Unknown]
  - Throat irritation [Unknown]
  - Rhinorrhoea [Unknown]
  - Illness [Recovering/Resolving]
